FAERS Safety Report 13018273 (Version 1)
Quarter: 2016Q4

REPORT INFORMATION
  Report Type: Spontaneous
  Country: US (occurrence: US)
  Receive Date: 20161212
  Receipt Date: 20161212
  Transmission Date: 20170207
  Serious: Yes (Other)
  Sender: FDA-Public Use
  Company Number: US-LPDUSPRD-20160031

PATIENT
  Age: 62 Year
  Sex: Female

DRUGS (19)
  1. NORVASC [Concomitant]
     Active Substance: AMLODIPINE BESYLATE
     Dosage: 5 MG; 1 TABLET DAILY
     Route: 048
  2. PANTOPRAZOLE SODIUM. [Concomitant]
     Active Substance: PANTOPRAZOLE SODIUM
     Dosage: 40 MG; 1 TAB DAILY
     Route: 048
  3. VITAMIN C [Concomitant]
     Active Substance: ASCORBIC ACID
     Dosage: 400 MG; 1 TABLET DAILY
     Route: 048
  4. MAGNESIUM [Concomitant]
     Active Substance: MAGNESIUM
     Dosage: 250 MG; 1 TABLET DAILY
     Route: 048
  5. POTASSIUM CHLORIDE CRYS ER [Concomitant]
     Active Substance: POTASSIUM CHLORIDE
     Dosage: 20 MEQ; 1 TABLET TWICE DAILY
     Route: 048
     Dates: start: 20110126
  6. PREDNISONE. [Concomitant]
     Active Substance: PREDNISONE
     Dosage: 5 MG; 1 TABLET DAILY
     Route: 048
  7. BONIVA [Concomitant]
     Active Substance: IBANDRONATE SODIUM
     Dosage: 1 TABLET ONCE A MONTH
     Route: 048
  8. COQ10 [Concomitant]
     Active Substance: UBIDECARENONE
     Dosage: 200 MG ; 1 CAPSULE DAILY
     Route: 048
  9. FUROSEMIDE. [Concomitant]
     Active Substance: FUROSEMIDE
     Dosage: 40 MG; 1 TABLET TWICE DAILY
     Route: 048
     Dates: start: 20110504
  10. VENOFER [Suspect]
     Active Substance: IRON SUCROSE
     Dosage: 400 MG IN 100 ML NSS IN 30 MIN
     Route: 042
     Dates: start: 20150901, end: 20151001
  11. ASPIRIN EC DELAYED RELEASE [Concomitant]
     Dosage: 81 MG; 1 TABLET DAILY
     Route: 048
  12. COREG [Concomitant]
     Active Substance: CARVEDILOL
     Dosage: 25 MG; 2 TABS TWICE DAILY
     Route: 048
  13. STRESS TABLS [Concomitant]
     Dosage: 1 TABLET DAILY
     Route: 048
  14. CALTRATE 600 PLUS - VIT D [Concomitant]
     Dosage: 1 TABLET TWICE DAILY
     Route: 048
  15. MYCOPHENOLATE MOFETIL. [Concomitant]
     Active Substance: MYCOPHENOLATE MOFETIL
     Dosage: 500 MG; 1 TABLET TWICE A DAY
     Route: 048
     Dates: start: 20110103
  16. WARFARIN SODIUM. [Concomitant]
     Active Substance: WARFARIN SODIUM
     Dosage: 5 MG; 1 TABLET DAILY
     Route: 048
  17. DIOVAN [Concomitant]
     Active Substance: VALSARTAN
     Dosage: 320 MG; 1 TABLET DAILY
     Route: 048
     Dates: start: 20120131
  18. PLAQUENIL [Concomitant]
     Active Substance: HYDROXYCHLOROQUINE SULFATE
     Dosage: SEE NARRATIVE
     Route: 048
  19. PRAVASTATIN SODIUM. [Concomitant]
     Active Substance: PRAVASTATIN SODIUM
     Dosage: 40 MG; 1 TABLET DAILY
     Route: 048

REACTIONS (4)
  - Pruritus [Unknown]
  - Oedema peripheral [Recovered/Resolved]
  - Drug hypersensitivity [Unknown]
  - Off label use [Recovered/Resolved]

NARRATIVE: CASE EVENT DATE: 20151001
